FAERS Safety Report 12724094 (Version 1)
Quarter: 2016Q3

REPORT INFORMATION
  Report Type: Spontaneous
  Country: US (occurrence: US)
  Receive Date: 20160908
  Receipt Date: 20160908
  Transmission Date: 20161109
  Serious: Yes (Hospitalization)
  Sender: FDA-Public Use
  Company Number: US-SA-2016SA150399

PATIENT
  Age: 63 Year
  Sex: Male

DRUGS (3)
  1. TORSEMIDE. [Suspect]
     Active Substance: TORSEMIDE
     Route: 065
     Dates: start: 2011
  2. LASIX [Suspect]
     Active Substance: FUROSEMIDE
     Route: 065
     Dates: start: 2011
  3. PLAVIX [Suspect]
     Active Substance: CLOPIDOGREL BISULFATE
     Route: 065
     Dates: start: 2011

REACTIONS (5)
  - Cardiac failure congestive [Unknown]
  - Amino acid level abnormal [Unknown]
  - High density lipoprotein increased [Unknown]
  - Weight decreased [Unknown]
  - Fluid retention [Recovered/Resolved]

NARRATIVE: CASE EVENT DATE: 2011
